FAERS Safety Report 8031510-6 (Version None)
Quarter: 2012Q1

REPORT INFORMATION
  Report Type: 
  Country: None (occurrence: None)
  Receive Date: 20120109
  Receipt Date: 20120104
  Transmission Date: 20120608
  Serious: Yes (Hospitalization, Other)
  Sender: FDA-Public Use
  Company Number: CA-ABBOTT-11P-028-0863067-00

PATIENT
  Sex: Female

DRUGS (1)
  1. HUMIRA [Suspect]
     Indication: CROHN'S DISEASE
     Dosage: UNKNOWN DEVICE
     Route: 058
     Dates: start: 20110723, end: 20111109

REACTIONS (7)
  - CHOLELITHIASIS [None]
  - LOCALISED OEDEMA [None]
  - DYSPNOEA EXERTIONAL [None]
  - INTESTINAL RESECTION [None]
  - ALOPECIA [None]
  - PAIN [None]
  - VOMITING [None]
